FAERS Safety Report 10055669 (Version 1)
Quarter: 2014Q2

REPORT INFORMATION
  Report Type: Spontaneous
  Country: US (occurrence: None)
  Receive Date: 20140402
  Receipt Date: 20140402
  Transmission Date: 20141212
  Serious: Yes (Disabling, Other)
  Sender: FDA-Public Use
  Company Number: None

PATIENT
  Age: 60 Year
  Sex: Female
  Weight: 68.04 kg

DRUGS (1)
  1. CEVIMELINE [Suspect]
     Indication: DRY MOUTH
     Dosage: 1 PILL ONCE DAILY TAKEN BY MOUTH
     Route: 048
     Dates: start: 20120321, end: 20120331

REACTIONS (9)
  - Salivary hypersecretion [None]
  - Wheezing [None]
  - Dyspnoea [None]
  - Suffocation feeling [None]
  - Asthenia [None]
  - Fatigue [None]
  - Dizziness [None]
  - Hypertension [None]
  - Economic problem [None]
